FAERS Safety Report 4483843-8 (Version None)
Quarter: 2004Q4

REPORT INFORMATION
  Report Type: 
  Country: None (occurrence: None)
  Receive Date: 20041020
  Receipt Date: 20041006
  Transmission Date: 20050328
  Serious: Yes (Death, Hospitalization)
  Sender: FDA-Public Use
  Company Number: FABR-10813

PATIENT
  Age: 36 Year
  Sex: Male
  Weight: 59.5 kg

DRUGS (8)
  1. FABRAZYME [Suspect]
     Indication: FABRY'S DISEASE
     Dosage: 70 MG Q2WKS IV
     Route: 042
     Dates: start: 20030618, end: 20041006
  2. SINGULAIR [Concomitant]
  3. ALBUTEROL [Concomitant]
  4. NEURONTIN [Concomitant]
  5. ZOLOFT [Concomitant]
  6. DEMEROL [Concomitant]
  7. FERROUS SULFATE TAB [Concomitant]
  8. ADVAIR [Concomitant]

REACTIONS (1)
  - DEATH [None]
